FAERS Safety Report 10183367 (Version 2)
Quarter: 2014Q2

REPORT INFORMATION
  Report Type: Spontaneous
  Country: DE (occurrence: DE)
  Receive Date: 20140520
  Receipt Date: 20140610
  Transmission Date: 20141212
  Serious: No
  Sender: FDA-Public Use
  Company Number: DE-009507513-1405DEU007603

PATIENT
  Age: 78 Year
  Sex: Male
  Weight: 68 kg

DRUGS (1)
  1. ECURAL [Suspect]
     Dosage: UNKNOWN
     Route: 047

REACTIONS (2)
  - Chemical burns of eye [Recovered/Resolved]
  - Accidental exposure to product [Unknown]
